FAERS Safety Report 4277890-9 (Version None)
Quarter: 2004Q1

REPORT INFORMATION
  Report Type: 
  Country: None (occurrence: None)
  Receive Date: 20040122
  Receipt Date: 20040122
  Transmission Date: 20041129
  Serious: Yes (Other)
  Sender: FDA-Public Use
  Company Number: None

PATIENT
  Age: 57 Year
  Sex: Male
  Weight: 62.1428 kg

DRUGS (10)
  1. ATAZANAVIR  300MG  BRISTOL-MYERS SQUIBB [Suspect]
     Indication: HIV INFECTION
     Dosage: 300MG  ONCE A DAY  ORAL
     Route: 048
     Dates: start: 20031112, end: 20031203
  2. BACTRIM DS [Concomitant]
  3. NEVERIPINE [Concomitant]
  4. LAMIVUDINE [Concomitant]
  5. TENOFOVIR [Concomitant]
  6. LISINOPRIL [Concomitant]
  7. HYDROCHLOROTHIAZIDE [Concomitant]
  8. METOPROLOL [Concomitant]
  9. LOPERAMIDE HCL [Concomitant]
  10. CHLORPHENIRAMINE SR [Concomitant]

REACTIONS (3)
  - ASCITES [None]
  - BLOOD BILIRUBIN INCREASED [None]
  - OEDEMA [None]
